FAERS Safety Report 12366295 (Version 2)
Quarter: 2017Q2

REPORT INFORMATION
  Report Type: Report from Study
  Country: AU (occurrence: AU)
  Receive Date: 20160513
  Receipt Date: 20170517
  Transmission Date: 20170830
  Serious: Yes (Other)
  Sender: FDA-Public Use
  Company Number: PHHY2016AU062987

PATIENT
  Age: 80 Year
  Sex: Female

DRUGS (1)
  1. SANDOSTATIN LAR DEPOT [Suspect]
     Active Substance: OCTREOTIDE ACETATE
     Indication: CARCINOID SYNDROME
     Dosage: 30 MG, UNK
     Route: 030

REACTIONS (20)
  - Blood bilirubin increased [Unknown]
  - Blood glucose increased [Unknown]
  - Oedema peripheral [Unknown]
  - Glomerular filtration rate decreased [Unknown]
  - Cellulitis [Unknown]
  - Red cell distribution width increased [Unknown]
  - Gamma-glutamyltransferase increased [Unknown]
  - Blood urea decreased [Unknown]
  - Neutrophil count decreased [Unknown]
  - Platelet count decreased [Unknown]
  - Blood alkaline phosphatase increased [Unknown]
  - Lymphocyte count decreased [Unknown]
  - Ascites [Unknown]
  - Globulins decreased [Unknown]
  - Blood albumin decreased [Unknown]
  - Abdominal pain [Unknown]
  - Abdominal distension [Unknown]
  - Cataract [Unknown]
  - Alanine aminotransferase decreased [Unknown]
  - Blood calcium decreased [Unknown]

NARRATIVE: CASE EVENT DATE: 20160619
